FAERS Safety Report 11793180 (Version 1)
Quarter: 2015Q4

REPORT INFORMATION
  Report Type: Spontaneous
  Country: US (occurrence: None)
  Receive Date: 20151201
  Receipt Date: 20151201
  Transmission Date: 20160305
  Serious: Yes (Other)
  Sender: FDA-Public Use
  Company Number: None

PATIENT
  Age: 65 Year
  Sex: Female

DRUGS (1)
  1. SOVALDI [Suspect]
     Active Substance: SOFOSBUVIR
     Indication: CHRONIC HEPATITIS C
     Dosage: DOSE FORM: ORAL
     Route: 048
     Dates: start: 20151001

REACTIONS (2)
  - Nausea [None]
  - Depressed mood [None]

NARRATIVE: CASE EVENT DATE: 20151001
